FAERS Safety Report 10716213 (Version 1)
Quarter: 2015Q1

REPORT INFORMATION
  Report Type: Spontaneous
  Country: SV (occurrence: SV)
  Receive Date: 20150116
  Receipt Date: 20150116
  Transmission Date: 20150721
  Serious: Yes (Death)
  Sender: FDA-Public Use
  Company Number: SV-ROCHE-1522173

PATIENT
  Age: 67 Year
  Sex: Female
  Weight: 98.52 kg

DRUGS (2)
  1. TRASTUZUMAB [Suspect]
     Active Substance: TRASTUZUMAB
     Indication: BREAST CANCER METASTATIC
     Route: 058
     Dates: start: 20141014, end: 20141216
  2. CAPECITABINE. [Suspect]
     Active Substance: CAPECITABINE
     Indication: BREAST CANCER METASTATIC
     Route: 048
     Dates: start: 20140924, end: 20141216

REACTIONS (2)
  - Metastases to central nervous system [Unknown]
  - Death [Fatal]

NARRATIVE: CASE EVENT DATE: 20150105
